FAERS Safety Report 11672987 (Version 1)
Quarter: 2015Q4

REPORT INFORMATION
  Report Type: Spontaneous
  Country: US (occurrence: US)
  Receive Date: 20151027
  Receipt Date: 20151027
  Transmission Date: 20160304
  Serious: No
  Sender: FDA-Public Use
  Company Number: US-ELI_LILLY_AND_COMPANY-US201006006737

PATIENT
  Sex: Female

DRUGS (2)
  1. FORTEO [Suspect]
     Active Substance: TERIPARATIDE
     Indication: OSTEOPOROSIS
     Dosage: 20 UG, DAILY (1/D)
     Dates: start: 20100601
  2. FORTEO [Suspect]
     Active Substance: TERIPARATIDE
     Dosage: 20 UG, DAILY (1/D)

REACTIONS (8)
  - Temporomandibular joint syndrome [Unknown]
  - Feeling abnormal [Unknown]
  - Fatigue [Unknown]
  - Postmenopausal haemorrhage [Unknown]
  - Jaw disorder [Unknown]
  - Pain in jaw [Recovered/Resolved]
  - Heart rate increased [Not Recovered/Not Resolved]
  - Memory impairment [Unknown]
